FAERS Safety Report 4625181-6 (Version None)
Quarter: 2005Q2

REPORT INFORMATION
  Report Type: 
  Country: None (occurrence: None)
  Receive Date: 20050401
  Receipt Date: 20050322
  Transmission Date: 20051028
  Serious: Yes (Other)
  Sender: FDA-Public Use
  Company Number: AU-BRISTOL-MYERS SQUIBB COMPANY-12913711

PATIENT

DRUGS (8)
  1. CISPLATIN [Suspect]
  2. CYCLOPHOSPHAMIDE [Suspect]
  3. DOXORUBICIN HCL [Suspect]
  4. ETOPOSIDE [Suspect]
  5. HYDROXYUREA [Suspect]
  6. METHOTREXATE [Suspect]
  7. PACLITAXEL [Suspect]
  8. MITOTANE [Suspect]

REACTIONS (1)
  - PALMAR-PLANTAR ERYTHRODYSAESTHESIA SYNDROME [None]
